FAERS Safety Report 7611109-3 (Version None)
Quarter: 2011Q3

REPORT INFORMATION
  Report Type: 
  Country: None (occurrence: None)
  Receive Date: 20110707
  Receipt Date: 20110620
  Transmission Date: 20111222
  Serious: Yes (Hospitalization, Other)
  Sender: FDA-Public Use
  Company Number: ENTC2011-0099

PATIENT
  Age: 71 Year
  Sex: Male

DRUGS (14)
  1. MADOPAR [Concomitant]
  2. PRAMIPEXOLE DIHYDROCHLORIDE [Suspect]
     Indication: PARKINSON'S DISEASE
     Dosage: SEE IMAGE
     Dates: start: 20101218
  3. PRAMIPEXOLE DIHYDROCHLORIDE [Suspect]
     Indication: PARKINSON'S DISEASE
     Dosage: SEE IMAGE
     Dates: start: 20081013
  4. PRAMIPEXOLE DIHYDROCHLORIDE [Suspect]
     Indication: PARKINSON'S DISEASE
     Dosage: SEE IMAGE
     Dates: start: 20081013
  5. SINEMET [Concomitant]
  6. AZILECT [Suspect]
     Indication: PARKINSON'S DISEASE
     Dates: start: 20080101
  7. REQUIP [Suspect]
     Indication: PARKINSON'S DISEASE
     Dates: start: 20080101
  8. LORAZEPAM [Concomitant]
  9. PENILEX [Concomitant]
  10. STALEVO 100 [Suspect]
     Indication: PARKINSON'S DISEASE
     Dosage: SEE IMAGE
     Dates: start: 20081013
  11. STALEVO 100 [Suspect]
     Indication: PARKINSON'S DISEASE
     Dosage: SEE IMAGE
     Dates: start: 20081013
  12. STALEVO 100 [Suspect]
     Indication: PARKINSON'S DISEASE
     Dosage: SEE IMAGE
     Dates: start: 20101218
  13. STALEVO 100 [Suspect]
     Indication: PARKINSON'S DISEASE
     Dosage: SEE IMAGE
  14. STALEVO 100 [Suspect]
     Indication: PARKINSON'S DISEASE
     Dosage: SEE IMAGE
     Dates: start: 20080101

REACTIONS (16)
  - JUDGEMENT IMPAIRED [None]
  - PARKINSON'S DISEASE [None]
  - FALL [None]
  - NOCTURIA [None]
  - ABNORMAL BEHAVIOUR [None]
  - FREEZING PHENOMENON [None]
  - DISSOCIATIVE IDENTITY DISORDER [None]
  - TREMOR [None]
  - DYSKINESIA [None]
  - BALANCE DISORDER [None]
  - HALLUCINATION [None]
  - DEMENTIA [None]
  - HYPERSEXUALITY [None]
  - LIBIDO INCREASED [None]
  - DISEASE RECURRENCE [None]
  - SEXUAL ABUSE [None]
